FAERS Safety Report 4613890-4 (Version None)
Quarter: 2005Q1

REPORT INFORMATION
  Report Type: 
  Country: None (occurrence: None)
  Receive Date: 20050316
  Receipt Date: 20050304
  Transmission Date: 20050727
  Serious: Yes (Hospitalization)
  Sender: FDA-Public Use
  Company Number: HQWYE887108MAR05

PATIENT
  Age: 56 Year
  Sex: Male

DRUGS (4)
  1. RAPAMUNE [Suspect]
     Indication: PROPHYLAXIS
     Dosage: 1 MG 1X PER 1 DAY
     Route: 048
     Dates: start: 20040114, end: 20050221
  2. RAPAMUNE [Suspect]
     Indication: TRANSPLANT REJECTION
     Dosage: 1 MG 1X PER 1 DAY
     Route: 048
     Dates: start: 20040114, end: 20050221
  3. PREDNISONE [Suspect]
     Indication: RENAL TRANSPLANT
     Dates: start: 20030101, end: 20050101
  4. TACROLIMUS (TACROLIMUS, ) [Suspect]
     Indication: RENAL TRANSPLANT
     Dates: start: 20030101, end: 20050101

REACTIONS (12)
  - BLOOD CREATININE INCREASED [None]
  - CEREBRAL INFARCTION [None]
  - COMPLICATIONS OF TRANSPLANTED KIDNEY [None]
  - ENDOCARDITIS [None]
  - ENTEROCOCCAL INFECTION [None]
  - HAEMODIALYSIS [None]
  - LOSS OF CONSCIOUSNESS [None]
  - OEDEMA [None]
  - PNEUMONIA [None]
  - PROTEINURIA [None]
  - PYREXIA [None]
  - RENAL FAILURE ACUTE [None]
